FAERS Safety Report 23897503 (Version 1)
Quarter: 2024Q2

REPORT INFORMATION
  Report Type: Spontaneous
  Country: CN (occurrence: CN)
  Receive Date: 20240524
  Receipt Date: 20240524
  Transmission Date: 20240716
  Serious: Yes (Other)
  Sender: FDA-Public Use
  Company Number: CN-PFIZER INC-PV202400067967

PATIENT
  Age: 57 Year
  Sex: Female
  Weight: 55 kg

DRUGS (1)
  1. ZYVOX [Suspect]
     Active Substance: LINEZOLID
     Indication: Symptomatic treatment
     Dosage: 600 MG, 1X/DAY
     Route: 048
     Dates: start: 20240504, end: 20240507

REACTIONS (1)
  - Tongue paralysis [Recovering/Resolving]

NARRATIVE: CASE EVENT DATE: 20240506
